FAERS Safety Report 13355806 (Version 1)
Quarter: 2017Q1

REPORT INFORMATION
  Report Type: Spontaneous
  Country: BR (occurrence: BR)
  Receive Date: 20170321
  Receipt Date: 20170321
  Transmission Date: 20170429
  Serious: Yes (Other)
  Sender: FDA-Public Use
  Company Number: BR-PFIZER INC-2017113349

PATIENT
  Age: 58 Year
  Sex: Female

DRUGS (3)
  1. COMBIGAN [Concomitant]
     Active Substance: BRIMONIDINE TARTRATE\TIMOLOL MALEATE
  2. XALATAN [Suspect]
     Active Substance: LATANOPROST
     Indication: INTRAOCULAR PRESSURE INCREASED
     Dosage: 1 DROP IN LEFT EYE, AT NIGHT
     Route: 047
     Dates: start: 2012
  3. DIAMOX /00016901/ [Concomitant]
     Active Substance: ACETAZOLAMIDE

REACTIONS (1)
  - Macular hole [Not Recovered/Not Resolved]
